FAERS Safety Report 5033413-8 (Version None)
Quarter: 2006Q2

REPORT INFORMATION
  Report Type: 
  Country: None (occurrence: None)
  Receive Date: 20060623
  Receipt Date: 20060614
  Transmission Date: 20061013
  Serious: Yes (Death, Hospitalization)
  Sender: FDA-Public Use
  Company Number: HR-NOVOPROD-254103

PATIENT
  Age: 53 Year
  Sex: Male

DRUGS (7)
  1. NOVOSEVEN [Suspect]
     Indication: POST PROCEDURAL HAEMORRHAGE
     Dosage: 1.2 MG, SINGLE
     Route: 042
     Dates: start: 20060427
  2. NOVOSEVEN [Suspect]
     Dosage: 6 MG, SINGLE
     Route: 042
     Dates: start: 20060427
  3. RED BLOOD CELLS [Concomitant]
     Indication: BLEEDING TIME PROLONGED
     Dosage: 4060 ML
     Route: 042
     Dates: start: 20060427, end: 20060427
  4. RED BLOOD CELLS [Concomitant]
     Dosage: 570 ML
     Route: 042
     Dates: start: 20060428, end: 20060428
  5. FRESH FROZEN PLASMA [Concomitant]
     Indication: BLEEDING TIME PROLONGED
     Dosage: 2150 ML
     Route: 042
     Dates: start: 20060427, end: 20060427
  6. FRESH FROZEN PLASMA [Concomitant]
     Dosage: 690 ML
     Route: 042
     Dates: start: 20060428, end: 20060428
  7. PLATELETS [Concomitant]
     Indication: BLEEDING TIME PROLONGED
     Dosage: 1000 ML
     Route: 042
     Dates: start: 20060427, end: 20060427

REACTIONS (2)
  - ARTERIAL THROMBOSIS [None]
  - SUBCLAVIAN ARTERY THROMBOSIS [None]
